FAERS Safety Report 8878894 (Version 1)
Quarter: 2012Q4

REPORT INFORMATION
  Report Type: 
  Country: US (occurrence: US)
  Receive Date: 20121026
  Receipt Date: 20121026
  Transmission Date: 20130627
  Serious: No
  Sender: FDA-Public Use
  Company Number: US-ASTRAZENECA-2011SE65646

PATIENT
  Age: 83 Year
  Sex: Female
  Weight: 108.9 kg

DRUGS (11)
  1. CRESTOR [Suspect]
     Indication: HYPERTENSION
     Route: 048
  2. BABBY ASPIRIN [Concomitant]
     Indication: CARDIAC DISORDER
  3. PRIMADONE [Concomitant]
     Indication: PAIN IN EXTREMITY
  4. LEVOTHYROXINE [Concomitant]
     Indication: THYROID DISORDER
  5. TOPROL XL [Concomitant]
     Indication: BLOOD PRESSURE ABNORMAL
  6. ZANTAC [Concomitant]
     Indication: GASTRIC DISORDER
  7. VITAMIN D [Concomitant]
  8. LASIX [Concomitant]
     Indication: OEDEMA
  9. COZAR [Concomitant]
     Indication: BLOOD PRESSURE ABNORMAL
  10. CALCIUM [Concomitant]
  11. VITAMIN B12 [Concomitant]

REACTIONS (2)
  - Osteoarthritis [Unknown]
  - Off label use [Unknown]
